FAERS Safety Report 6593972-0 (Version None)
Quarter: 2010Q1

REPORT INFORMATION
  Report Type: 
  Country: None (occurrence: None)
  Receive Date: 20100212
  Receipt Date: 20091120
  Transmission Date: 20100710
  Serious: Yes (Hospitalization)
  Sender: FDA-Public Use
  Company Number: 2010-0460

PATIENT
  Age: 78 Year
  Sex: Female

DRUGS (2)
  1. APO-GO AMPOULES (APO-GO) (APOMORPHINE HYDROCHLORIDE) (APOMORPHINE HYDR [Suspect]
     Indication: DRUG USE FOR UNKNOWN INDICATION
     Dosage: CONTINUOUS INJECTION, SUBCUTANEOUS
     Route: 058
     Dates: start: 20090703
  2. DOMPERIDONE (DOMPERIDONE) [Concomitant]

REACTIONS (2)
  - SALIVA DISCOLOURATION [None]
  - VOMITING [None]
